FAERS Safety Report 17036309 (Version 7)
Quarter: 2020Q1

REPORT INFORMATION
  Report Type: Spontaneous
  Country: GB (occurrence: GB)
  Receive Date: 20191115
  Receipt Date: 20200317
  Transmission Date: 20200409
  Serious: Yes (Death, Hospitalization, Other)
  Sender: FDA-Public Use
  Company Number: NVSC2019GB036584

PATIENT
  Age: 60 Year
  Sex: Male

DRUGS (2)
  1. MEKINIST [Suspect]
     Active Substance: TRAMETINIB DIMETHYL SULFOXIDE
     Indication: METASTATIC MALIGNANT MELANOMA
     Dosage: 2 MG, QD (TREATMENT FOR ABOUT 6 WEEK)
     Route: 065
     Dates: start: 201909
  2. TAFINLAR [Suspect]
     Active Substance: DABRAFENIB MESYLATE
     Indication: METASTATIC MALIGNANT MELANOMA
     Dosage: 150 MG, BID (TREATMENT FOR ABOUT 6 WEEK)
     Route: 065
     Dates: start: 201909

REACTIONS (13)
  - Sepsis [Fatal]
  - Metastatic malignant melanoma [Fatal]
  - Multiple organ dysfunction syndrome [Unknown]
  - Metastases to central nervous system [Unknown]
  - Liver function test increased [Fatal]
  - Pyrexia [Fatal]
  - Renal failure [Fatal]
  - Disseminated intravascular coagulation [Fatal]
  - Tachycardia [Unknown]
  - Hepatic function abnormal [Unknown]
  - Hypoxia [Unknown]
  - Hypotension [Unknown]
  - Renal impairment [Unknown]

NARRATIVE: CASE EVENT DATE: 2019
